FAERS Safety Report 8181448-9 (Version None)
Quarter: 2012Q1

REPORT INFORMATION
  Report Type: 
  Country: None (occurrence: None)
  Receive Date: 20120126
  Receipt Date: 20111024
  Transmission Date: 20120608
  Serious: Yes (Other)
  Sender: FDA-Public Use
  Company Number: PHEH2011US07725

PATIENT

DRUGS (1)
  1. AFINITOR [Suspect]
     Dosage: 10 MG, QD , ORAL 5 MG, ORAL 10 MG, ORAL
     Route: 048

REACTIONS (3)
  - HYPOAESTHESIA ORAL [None]
  - DISEASE PROGRESSION [None]
  - EPISTAXIS [None]
